FAERS Safety Report 8947899 (Version 1)
Quarter: 2012Q4

REPORT INFORMATION
  Report Type: Spontaneous
  Country: GB (occurrence: None)
  Receive Date: 20121127
  Receipt Date: 20121127
  Transmission Date: 20130627
  Serious: Yes (Death, Hospitalization)
  Sender: FDA-Public Use
  Company Number: 2012/171

PATIENT
  Age: 52 Year
  Sex: Female

DRUGS (8)
  1. AMLODIPINE [Suspect]
  2. DOXEPIN [Suspect]
     Indication: DEPRESSION
  3. OLANZAPINE [Concomitant]
  4. PROTHIPENDYL [Concomitant]
  5. TILIDINE [Concomitant]
  6. DIAZEPAM [Concomitant]
  7. METOPROLOL [Concomitant]
  8. IBUPROFEN [Concomitant]

REACTIONS (7)
  - Salivary hypersecretion [None]
  - Gait disturbance [None]
  - Somnolence [None]
  - Pain [None]
  - Insomnia [None]
  - Toxicity to various agents [None]
  - Drug level above therapeutic [None]
